FAERS Safety Report 7341267-X (Version None)
Quarter: 2011Q1

REPORT INFORMATION
  Report Type: 
  Country: None (occurrence: None)
  Receive Date: 20110309
  Receipt Date: 20110224
  Transmission Date: 20110831
  Serious: Yes (Hospitalization, Other)
  Sender: FDA-Public Use
  Company Number: PHHY2008JP12496

PATIENT
  Age: 52 Year
  Sex: Male
  Weight: 54 kg

DRUGS (31)
  1. CERTICAN [Suspect]
     Indication: HEART TRANSPLANT
     Dosage: 2 MG
     Route: 048
     Dates: start: 20070713, end: 20070723
  2. CERTICAN [Suspect]
     Dosage: 2.5 MG
     Route: 048
     Dates: start: 20080825, end: 20080906
  3. NEORAL [Suspect]
     Indication: RENAL TRANSPLANT
     Dosage: UNK
     Dates: start: 20010101, end: 20060101
  4. CERTICAN [Suspect]
     Dosage: 3 MG
     Route: 048
     Dates: start: 20070724, end: 20070727
  5. CERTICAN [Suspect]
     Dosage: 1.25 MG
     Route: 048
     Dates: start: 20080730, end: 20080730
  6. PROGRAF [Suspect]
     Dosage: 3 MG
     Route: 048
     Dates: start: 20080801, end: 20080822
  7. PRAVASTATIN SODIUM [Concomitant]
     Dosage: 20 MG
     Route: 048
  8. PROGRAF [Suspect]
     Dosage: 2.25 MG
     Route: 048
     Dates: start: 20080823, end: 20080825
  9. AZATHIOPRINE [Concomitant]
     Route: 048
  10. PREDONINE [Concomitant]
     Dosage: UNK
     Route: 048
  11. MYCOPHENOLATE MOFETIL [Concomitant]
     Dosage: 250 MG PER DAY
     Route: 048
  12. MYCOPHENOLATE MOFETIL [Concomitant]
     Dosage: 250 MG
     Route: 048
  13. CERTICAN [Suspect]
     Dosage: 2.75 MG
     Route: 048
     Dates: start: 20080907, end: 20080927
  14. PREDNISOLONE [Suspect]
     Dosage: 5 MG
     Route: 048
     Dates: start: 20080730
  15. CHEMOTHERAPEUTICS NOS [Concomitant]
     Dosage: UNK
     Dates: start: 20081001, end: 20090301
  16. CERTICAN [Suspect]
     Dosage: 1.75 MG
     Dates: start: 20080801, end: 20080824
  17. CERTICAN [Suspect]
     Dosage: 3 MG
     Route: 048
     Dates: start: 20090606, end: 20090718
  18. CERTICAN [Suspect]
     Dosage: 4 MG
     Route: 048
     Dates: start: 20090719
  19. PROGRAF [Suspect]
     Dosage: 4 MG
     Route: 048
     Dates: start: 20020219, end: 20070712
  20. STEROIDS NOS [Concomitant]
     Dosage: UNK
     Dates: start: 20010101
  21. CERTICAN [Suspect]
     Dosage: 2.75 MG
     Route: 048
     Dates: start: 20070728, end: 20071007
  22. CERTICAN [Suspect]
     Dosage: 3.25 MG
     Route: 048
     Dates: start: 20080928, end: 20090605
  23. PROGRAF [Suspect]
     Dosage: 0.5 MG
     Route: 048
     Dates: start: 20070713
  24. PROGRAF [Suspect]
     Dosage: 2 MG
     Route: 048
     Dates: start: 20080826, end: 20080927
  25. PROGRAF [Suspect]
     Dosage: 1.5 MG
     Route: 048
     Dates: start: 20080928, end: 20081002
  26. TACROLIMUS [Concomitant]
     Dosage: UNK
     Dates: start: 20010101
  27. PRAVASTATIN SODIUM [Concomitant]
     Dosage: 10 MG
     Route: 048
     Dates: start: 19950601
  28. CERTICAN [Suspect]
     Dosage: 2.5 MG
     Route: 048
     Dates: start: 20071008
  29. NEORAL [Suspect]
     Indication: HEART TRANSPLANT
     Dosage: UNK
     Route: 048
     Dates: start: 19950101, end: 20010101
  30. PROGRAF [Suspect]
     Dosage: UNK
     Route: 048
     Dates: start: 20010101, end: 20061201
  31. PROGRAF [Suspect]
     Dosage: 3.5 MG
     Route: 048
     Dates: start: 20080729, end: 20080730

REACTIONS (7)
  - EPSTEIN-BARR VIRUS ASSOCIATED LYMPHOPROLIFERATIVE DISORDER [None]
  - BACK PAIN [None]
  - BLOOD TRIGLYCERIDES INCREASED [None]
  - RENAL FAILURE CHRONIC [None]
  - KIDNEY TRANSPLANT REJECTION [None]
  - RENAL IMPAIRMENT [None]
  - C-REACTIVE PROTEIN DECREASED [None]
